FAERS Safety Report 5012228-0 (Version None)
Quarter: 2006Q2

REPORT INFORMATION
  Report Type: 
  Country: None (occurrence: None)
  Receive Date: 20060525
  Receipt Date: 20060525
  Transmission Date: 20061013
  Serious: Yes (Death)
  Sender: FDA-Public Use
  Company Number: None

PATIENT
  Sex: Male
  Weight: 103.8737 kg

DRUGS (1)
  1. REMICADE [Suspect]
     Indication: RHEUMATOID ARTHRITIS
     Dosage: 400 MG   Q 8 WEEKS   IV
     Route: 042
     Dates: start: 20010101, end: 20051207

REACTIONS (3)
  - HEPATOMEGALY [None]
  - LYMPHADENOPATHY [None]
  - NO THERAPEUTIC RESPONSE [None]
